FAERS Safety Report 15537705 (Version 1)
Quarter: 2018Q4

REPORT INFORMATION
  Report Type: Spontaneous
  Country: BG (occurrence: BG)
  Receive Date: 20181022
  Receipt Date: 20181022
  Transmission Date: 20190205
  Serious: Yes (Death, Hospitalization, Other)
  Sender: FDA-Public Use
  Company Number: BG-PFIZER INC-2018425562

PATIENT
  Age: 39 Year
  Sex: Female
  Weight: 100 kg

DRUGS (6)
  1. DENOSUMAB [Suspect]
     Active Substance: DENOSUMAB
     Dosage: UNK
     Dates: start: 201806
  2. FULVESTRANT. [Suspect]
     Active Substance: FULVESTRANT
     Dosage: UNK
     Dates: start: 201806
  3. DENOSUMAB [Suspect]
     Active Substance: DENOSUMAB
     Dosage: (DOSE REDUCED)
     Dates: start: 201808
  4. FULVESTRANT. [Suspect]
     Active Substance: FULVESTRANT
     Dosage: (DOSE REDUCED)
     Dates: start: 201808
  5. IBRANCE [Suspect]
     Active Substance: PALBOCICLIB
     Dosage: (DOSE REDUCED)
     Dates: start: 201808, end: 201809
  6. IBRANCE [Suspect]
     Active Substance: PALBOCICLIB
     Indication: BREAST CANCER
     Dosage: UNK
     Dates: start: 201806

REACTIONS (10)
  - Death [Fatal]
  - Mucous membrane disorder [Unknown]
  - Localised oedema [Unknown]
  - Neutropenia [Unknown]
  - Anaemia [Unknown]
  - Thrombocytopenia [Unknown]
  - Neoplasm progression [Unknown]
  - Epistaxis [Unknown]
  - Granulocytopenia [Unknown]
  - Skin irritation [Unknown]

NARRATIVE: CASE EVENT DATE: 201808
